FAERS Safety Report 7723333-X (Version None)
Quarter: 2011Q3

REPORT INFORMATION
  Report Type: 
  Country: None (occurrence: None)
  Receive Date: 20110901
  Receipt Date: 20110901
  Transmission Date: 20111222
  Serious: No
  Sender: FDA-Public Use
  Company Number: None

PATIENT
  Age: 66 Year
  Sex: Male
  Weight: 112.49 kg

DRUGS (1)
  1. CIPROFLOXACIN [Suspect]
     Indication: BIOPSY PROSTATE
     Dosage: 500MG
     Route: 048
     Dates: start: 20090201, end: 20090203

REACTIONS (12)
  - TEMPERATURE INTOLERANCE [None]
  - MEMORY IMPAIRMENT [None]
  - PAIN IN EXTREMITY [None]
  - BACK PAIN [None]
  - MUSCULOSKELETAL PAIN [None]
  - TRIGGER FINGER [None]
  - DISTURBANCE IN ATTENTION [None]
  - HEADACHE [None]
  - FATIGUE [None]
  - SLEEP DISORDER [None]
  - ASTHENIA [None]
  - IMPAIRED WORK ABILITY [None]
